FAERS Safety Report 23738169 (Version 1)
Quarter: 2024Q2

REPORT INFORMATION
  Report Type: Report from Study
  Country: CA (occurrence: None)
  Receive Date: 20240412
  Receipt Date: 20240412
  Transmission Date: 20240715
  Serious: Yes (Other)
  Sender: FDA-Public Use
  Company Number: 2024A084644

PATIENT
  Sex: Female

DRUGS (1)
  1. FASENRA [Suspect]
     Active Substance: BENRALIZUMAB
     Indication: Asthma
     Dosage: 30.0MG UNKNOWN
     Route: 058
     Dates: start: 20220817

REACTIONS (6)
  - Neck pain [Unknown]
  - Arthralgia [Unknown]
  - Pyrexia [Unknown]
  - Gait disturbance [Unknown]
  - Dysphonia [Unknown]
  - Infection [Unknown]
